FAERS Safety Report 12435887 (Version 4)
Quarter: 2016Q3

REPORT INFORMATION
  Report Type: Spontaneous
  Country: NL (occurrence: NL)
  Receive Date: 20160604
  Receipt Date: 20160714
  Transmission Date: 20161109
  Serious: Yes (Other)
  Sender: FDA-Public Use
  Company Number: NL-AUROBINDO-AUR-APL-2016-07295

PATIENT
  Age: 70 Year
  Sex: Female

DRUGS (3)
  1. MACROGOL [Concomitant]
     Active Substance: POLYETHYLENE GLYCOLS
     Indication: PRODUCT USED FOR UNKNOWN INDICATION
     Route: 065
  2. PAROXETIN AUROBINDO FILM-COATED TABLET 20MG [Suspect]
     Active Substance: PAROXETINE HYDROCHLORIDE
     Indication: BURNING MOUTH SYNDROME
     Dosage: 1 DF, ONCE A DAY
     Route: 065
  3. PANTOPRAZOL [Concomitant]
     Active Substance: PANTOPRAZOLE SODIUM
     Indication: PRODUCT USED FOR UNKNOWN INDICATION
     Route: 065

REACTIONS (1)
  - Drug ineffective for unapproved indication [Recovered/Resolved]
